FAERS Safety Report 14487962 (Version 4)
Quarter: 2018Q1

REPORT INFORMATION
  Report Type: Report from Study
  Country: CR (occurrence: CR)
  Receive Date: 20180205
  Receipt Date: 20180226
  Transmission Date: 20180509
  Serious: Yes (Life-Threatening, Hospitalization, Other)
  Sender: FDA-Public Use
  Company Number: PHHY2017CR186031

PATIENT
  Age: 51 Year
  Sex: Female
  Weight: 64 kg

DRUGS (7)
  1. OCTREOTIDE. [Suspect]
     Active Substance: OCTREOTIDE
     Indication: PRODUCT USED FOR UNKNOWN INDICATION
     Dosage: 1 DF, QMO (1 AMPOULE EVERY MONTH)
     Route: 030
  2. DEXAMETHASONE. [Concomitant]
     Active Substance: DEXAMETHASONE
     Indication: PRODUCT USED FOR UNKNOWN INDICATION
     Route: 065
  3. VOLTAREN [Concomitant]
     Active Substance: DICLOFENAC SODIUM
     Indication: PRODUCT USED FOR UNKNOWN INDICATION
     Route: 065
  4. AFINITOR [Suspect]
     Active Substance: EVEROLIMUS
     Indication: NEUROENDOCRINE TUMOUR
     Dosage: 10 MG, QD (DAILY)
     Route: 048
     Dates: start: 201711, end: 20180125
  5. TENOXICAM [Concomitant]
     Active Substance: TENOXICAM
     Indication: PRODUCT USED FOR UNKNOWN INDICATION
     Dosage: 1 DF, QD (1 TABLET DAILY)
     Route: 048
  6. SANDOSTATIN LAR DEPOT [Suspect]
     Active Substance: OCTREOTIDE ACETATE
     Indication: PRODUCT USED FOR UNKNOWN INDICATION
     Route: 065
  7. AMLODIPINE [Concomitant]
     Active Substance: AMLODIPINE BESYLATE
     Indication: PRODUCT USED FOR UNKNOWN INDICATION
     Dosage: 1 DF, QD (1 TABLET DAILY)
     Route: 048

REACTIONS (33)
  - Bronchial oedema [Unknown]
  - Nasal congestion [Unknown]
  - Influenza like illness [Unknown]
  - Agitation [Unknown]
  - Fatigue [Unknown]
  - Nausea [Unknown]
  - Dyspnoea [Recovering/Resolving]
  - Gait disturbance [Unknown]
  - Eye pruritus [Unknown]
  - Bladder disorder [Recovering/Resolving]
  - Dysgeusia [Unknown]
  - Malaise [Not Recovered/Not Resolved]
  - Urticaria [Unknown]
  - Blood triglycerides increased [Unknown]
  - Pyrexia [Unknown]
  - Speech disorder [Unknown]
  - Peripheral swelling [Unknown]
  - Eyelid oedema [Unknown]
  - Tongue blistering [Unknown]
  - Headache [Unknown]
  - Cough [Unknown]
  - Choking [Recovering/Resolving]
  - Malignant neoplasm progression [Not Recovered/Not Resolved]
  - Feeling abnormal [Unknown]
  - Rash [Unknown]
  - Diarrhoea [Unknown]
  - Lung infection [Recovering/Resolving]
  - Oral mucosal blistering [Recovered/Resolved]
  - Bronchial disorder [Unknown]
  - Sneezing [Unknown]
  - Blood glucose increased [Unknown]
  - Pruritus [Unknown]
  - Weight decreased [Unknown]

NARRATIVE: CASE EVENT DATE: 20171204
